FAERS Safety Report 12366331 (Version 2)
Quarter: 2016Q2

REPORT INFORMATION
  Report Type: Spontaneous
  Country: US (occurrence: US)
  Receive Date: 20160513
  Receipt Date: 20160602
  Transmission Date: 20160815
  Serious: Yes (Hospitalization, Other)
  Sender: FDA-Public Use
  Company Number: US-BRISTOL-MYERS SQUIBB COMPANY-BMS-2016-036456

PATIENT
  Sex: Male

DRUGS (2)
  1. ELIQUIS [Suspect]
     Active Substance: APIXABAN
     Dosage: 2.5 MG, UNK
     Route: 048
  2. ELIQUIS [Suspect]
     Active Substance: APIXABAN
     Indication: CEREBROVASCULAR ACCIDENT PROPHYLAXIS
     Dosage: 5 MG, BID
     Route: 048

REACTIONS (11)
  - Cerebrovascular accident [Unknown]
  - Pneumonia [Unknown]
  - Pharyngeal oedema [Unknown]
  - Asthenia [Unknown]
  - Anaemia [Unknown]
  - Dyspnoea [Unknown]
  - Haemorrhage [Unknown]
  - Transfusion [Unknown]
  - Dysphagia [Unknown]
  - Renal disorder [Unknown]
  - Ulcer [Unknown]

NARRATIVE: CASE EVENT DATE: 201601
